FAERS Safety Report 10899243 (Version 3)
Quarter: 2015Q2

REPORT INFORMATION
  Report Type: Spontaneous
  Country: VE (occurrence: VE)
  Receive Date: 20150309
  Receipt Date: 20150604
  Transmission Date: 20150821
  Serious: Yes (Other)
  Sender: FDA-Public Use
  Company Number: VE-PFIZER INC-2015080121

PATIENT
  Age: 49 Year
  Sex: Female

DRUGS (2)
  1. AZULFIDINE [Suspect]
     Active Substance: SULFASALAZINE
     Indication: PSORIATIC ARTHROPATHY
     Dosage: 2 DF, 2X/DAY (AT 8 AM AND 8 PM)
     Dates: start: 2013
  2. AZULFIDINE [Suspect]
     Active Substance: SULFASALAZINE
     Dosage: 500 MG, 1X/DAY
     Dates: start: 2014

REACTIONS (3)
  - Drug ineffective [Not Recovered/Not Resolved]
  - Chikungunya virus infection [Unknown]
  - Psoriatic arthropathy [Unknown]

NARRATIVE: CASE EVENT DATE: 201410
